FAERS Safety Report 17063950 (Version 2)
Quarter: 2019Q4

REPORT INFORMATION
  Report Type: Report from Study
  Country: None (occurrence: CO)
  Receive Date: 20191122
  Receipt Date: 20191213
  Transmission Date: 20200122
  Serious: Yes (Other)
  Sender: FDA-Public Use
  Company Number: CO-ABBVIE-19K-036-3011070-00

PATIENT
  Sex: Female
  Weight: 52 kg

DRUGS (2)
  1. ACETAMINOPHEN. [Concomitant]
     Active Substance: ACETAMINOPHEN
     Indication: PAIN
     Route: 048
     Dates: start: 2013
  2. HUMIRA [Suspect]
     Active Substance: ADALIMUMAB
     Indication: RHEUMATOID ARTHRITIS
     Route: 058
     Dates: start: 20140604

REACTIONS (6)
  - Surgery [Recovered/Resolved]
  - Osteoarthritis [Recovering/Resolving]
  - Procedural pain [Not Recovered/Not Resolved]
  - Chondropathy [Recovering/Resolving]
  - Cyst [Recovering/Resolving]
  - Ligament disorder [Recovering/Resolving]

NARRATIVE: CASE EVENT DATE: 2015
